FAERS Safety Report 7821388-5 (Version None)
Quarter: 2011Q4

REPORT INFORMATION
  Report Type: 
  Country: None (occurrence: None)
  Receive Date: 20111018
  Receipt Date: 20111010
  Transmission Date: 20120403
  Serious: Yes (Hospitalization, Disabling, Other)
  Sender: FDA-Public Use
  Company Number: DE-BAYER-2011-073492

PATIENT
  Age: 64 Year
  Sex: Female

DRUGS (1)
  1. AVELOX [Suspect]
     Indication: BRONCHITIS BACTERIAL
     Dosage: UNK
     Dates: start: 20110810, end: 20110815

REACTIONS (4)
  - OPTIC NEURITIS [None]
  - VISUAL IMPAIRMENT [None]
  - VISION BLURRED [None]
  - AMAUROSIS [None]
